FAERS Safety Report 16276262 (Version 2)
Quarter: 2019Q2

REPORT INFORMATION
  Report Type: Report from Study
  Country: US (occurrence: US)
  Receive Date: 20190506
  Receipt Date: 20190528
  Transmission Date: 20190711
  Serious: Yes (Other)
  Sender: FDA-Public Use
  Company Number: US-JNJFOC-20190501414

PATIENT
  Sex: Female

DRUGS (24)
  1. DICYCLOMINE [Concomitant]
     Active Substance: DICYCLOMINE HYDROCHLORIDE
  2. QVAR [Concomitant]
     Active Substance: BECLOMETHASONE DIPROPIONATE
  3. CRESTOR [Concomitant]
     Active Substance: ROSUVASTATIN CALCIUM
  4. DICLOFENAC SODIUM. [Concomitant]
     Active Substance: DICLOFENAC SODIUM
  5. KEPPRA [Concomitant]
     Active Substance: LEVETIRACETAM
  6. CYANOCOBALAMIN. [Concomitant]
     Active Substance: CYANOCOBALAMIN
  7. ASCORBIC ACID. [Concomitant]
     Active Substance: ASCORBIC ACID
  8. VITAMIN D NOS [Concomitant]
     Active Substance: VITAMIN D NOS
  9. CALCIUM +D3 [Concomitant]
     Active Substance: CALCIUM\CHOLECALCIFEROL
  10. ACETYLSALICYLIC ACID [Concomitant]
     Active Substance: ASPIRIN
  11. CRANBERRY. [Concomitant]
     Active Substance: CRANBERRY
  12. METOPROLOL SUCCINATE. [Suspect]
     Active Substance: METOPROLOL SUCCINATE
     Indication: PRODUCT USED FOR UNKNOWN INDICATION
  13. CRANBERRY. [Concomitant]
     Active Substance: CRANBERRY
  14. MOBIC [Concomitant]
     Active Substance: MELOXICAM
  15. FLONASE [Concomitant]
     Active Substance: FLUTICASONE PROPIONATE
  16. HYDROXYZINE [Concomitant]
     Active Substance: HYDROXYZINE HYDROCHLORIDE
  17. PROLIA [Concomitant]
     Active Substance: DENOSUMAB
  18. SINGULAIR [Concomitant]
     Active Substance: MONTELUKAST SODIUM
  19. IMBRUVICA [Suspect]
     Active Substance: IBRUTINIB
     Indication: LYMPHOCYTIC LEUKAEMIA
     Route: 048
     Dates: start: 20190419
  20. AMBIEN [Concomitant]
     Active Substance: ZOLPIDEM TARTRATE
  21. MULTIVITAMINS [Concomitant]
     Active Substance: VITAMINS
  22. FISH OIL W/TOCOPHEROL [Concomitant]
     Active Substance: FISH OIL\TOCOPHEROL
  23. SYNTHROID [Concomitant]
     Active Substance: LEVOTHYROXINE SODIUM
  24. VALTREX [Concomitant]
     Active Substance: VALACYCLOVIR HYDROCHLORIDE

REACTIONS (1)
  - Cardiac disorder [Unknown]
